FAERS Safety Report 8773497 (Version 1)
Quarter: 2012Q4

REPORT INFORMATION
  Report Type: 
  Country: US (occurrence: US)
  Receive Date: 20120907
  Receipt Date: 20120907
  Transmission Date: 20130627
  Serious: Yes (Other)
  Sender: FDA-Public Use
  Company Number: US-GLAXOSMITHKLINE-A0992213A

PATIENT
  Age: 41 Year
  Sex: Male

DRUGS (3)
  1. POTIGA [Suspect]
     Indication: EPILEPSY
     Dosage: 100MG Three times per day
     Route: 065
     Dates: start: 201207
  2. TRILEPTAL [Concomitant]
  3. KEPPRA [Concomitant]

REACTIONS (2)
  - Hallucination, auditory [Recovering/Resolving]
  - Irritability [Recovering/Resolving]
